FAERS Safety Report 9083454 (Version 2)
Quarter: 2013Q3

REPORT INFORMATION
  Report Type: Report from Study
  Country: DE (occurrence: DE)
  Receive Date: 20130130
  Receipt Date: 20130903
  Transmission Date: 20140515
  Serious: Yes (Hospitalization)
  Sender: FDA-Public Use
  Company Number: DE-BAYER-2012-130121

PATIENT
  Sex: Female
  Weight: 47.5 kg

DRUGS (10)
  1. REGORAFENIB [Suspect]
     Indication: COLON CANCER
     Dosage: 4X40MG DAILY=160MG
     Route: 048
     Dates: start: 20121115, end: 20121205
  2. PANTOZOL [Concomitant]
     Indication: PROPHYLAXIS
     Dosage: BID
     Route: 048
     Dates: start: 20121206
  3. SEVREDOL [Concomitant]
     Indication: TUMOUR PAIN
     Dosage: 20 MG, PRN
     Route: 048
     Dates: start: 20121001
  4. NOVAMINSULFON [Concomitant]
     Indication: TUMOUR PAIN
     Dosage: DAILY DOSE 40 MG
     Route: 048
     Dates: start: 201204
  5. FENTANYL [Concomitant]
     Indication: TUMOUR PAIN
     Dosage: UNK
     Route: 062
     Dates: start: 201204
  6. LYRICA [Concomitant]
     Indication: TUMOUR PAIN
     Dosage: DAILY DOSE 75 MG
     Route: 048
     Dates: start: 20121017
  7. PALLADON [Concomitant]
     Indication: TUMOUR PAIN
     Dosage: DAILY DOSE 5.2 MG
     Route: 048
     Dates: start: 20121122
  8. PALLADON [Concomitant]
     Indication: TUMOUR PAIN
     Dosage: 28 MG QAM/ 20-32 MG QPM/PRN
     Dates: start: 20121206
  9. DEXAMETHASON [Concomitant]
     Indication: TUMOUR PAIN
     Dosage: QID
     Route: 048
     Dates: start: 20121122
  10. MOVICOL [Concomitant]
     Indication: SCAN WITH CONTRAST

REACTIONS (2)
  - Duodenal ulcer [Recovered/Resolved]
  - Melaena [None]
